FAERS Safety Report 4353840-1 (Version None)
Quarter: 2004Q2

REPORT INFORMATION
  Report Type: 
  Country: None (occurrence: None)
  Receive Date: 20040506
  Receipt Date: 20031107
  Transmission Date: 20050107
  Serious: No
  Sender: FDA-Public Use
  Company Number: US-GLAXOSMITHKLINE-A0438811A

PATIENT
  Age: 15 Month
  Sex: Male

DRUGS (1)
  1. AMOXIL [Suspect]
     Indication: LOWER RESPIRATORY TRACT INFECTION
     Dosage: 5CC TWICE PER DAY
     Route: 048
     Dates: start: 20031106

REACTIONS (2)
  - FEELING ABNORMAL [None]
  - INSOMNIA [None]
